FAERS Safety Report 9054141 (Version 2)
Quarter: 2013Q2

REPORT INFORMATION
  Report Type: Report from Study
  Country: US (occurrence: US)
  Receive Date: 20130208
  Receipt Date: 20130419
  Transmission Date: 20140414
  Serious: Yes (Hospitalization, Other)
  Sender: FDA-Public Use
  Company Number: US-GENZYME-LEUK-1000328

PATIENT
  Age: 6 Year
  Sex: Female
  Weight: 23 kg

DRUGS (17)
  1. LEUKINE [Suspect]
     Indication: NEUROBLASTOMA
     Dosage: 230 MCG, QD (IN COURSES 1, 3 AND 5)
     Route: 058
     Dates: start: 20121214, end: 20121214
  2. LEUKINE [Suspect]
     Dosage: 230 MCG, QD
     Route: 058
     Dates: start: 20121215, end: 20121216
  3. LEUKINE [Suspect]
     Dosage: 230 MCG, QD
     Route: 058
  4. CHIMERIC MONOCLONAL ANTIBODY CH14.18 [Suspect]
     Indication: NEUROBLASTOMA
     Dosage: 16 MG, QD
     Route: 042
     Dates: start: 20121217, end: 20121220
  5. ISOTRETINOIN [Suspect]
     Indication: NEUROBLASTOMA
     Dosage: UNK (ALL SIX COURSES)
     Route: 065
  6. INTERLEUKIN-2 [Suspect]
     Indication: NEUROBLASTOMA
     Dosage: UNK (IN COURSES 2 AND 4)
     Route: 065
  7. ACICLOVIR [Concomitant]
     Indication: ANTIVIRAL PROPHYLAXIS
     Dosage: 200 MG, BID
     Route: 048
     Dates: start: 20121214
  8. ALBUTEROL [Concomitant]
     Indication: ASTHMA
     Dosage: (2 PUFFS), BID
     Route: 065
     Dates: start: 20121214
  9. BECLOMETHASONE [Concomitant]
     Indication: ASTHMA
     Dosage: 80 MCG, QD (2 PUFFS)
     Route: 065
     Dates: start: 20121214
  10. CYPROHEPTADINE [Concomitant]
     Indication: APPETITE DISORDER
     Dosage: 4 MG, TID
     Route: 048
     Dates: start: 20121214
  11. BACTRIM [Concomitant]
     Indication: ANTIFUNGAL PROPHYLAXIS
     Dosage: 1 DF, BID
     Route: 048
     Dates: start: 20121214
  12. LORAZEPAM [Concomitant]
     Indication: NAUSEA
     Dosage: 0.5 MG, (ONE IN SIX HOURS), PRN
     Route: 042
     Dates: start: 20121216, end: 20121222
  13. MORPHINE [Concomitant]
     Indication: PAIN
     Dosage: 0.5 MG/HR, CONTINUOUS DOSE
     Route: 042
     Dates: start: 20121217, end: 20121221
  14. ONDANSETRON [Concomitant]
     Indication: NAUSEA
     Dosage: 4 MG, BID
     Route: 048
     Dates: start: 20121117, end: 20121216
  15. ONDANSETRON [Concomitant]
     Dosage: 3.5 MG, QD, INJECTION
     Route: 042
     Dates: start: 20121217, end: 20121222
  16. MULTIVITAMIN [Concomitant]
     Indication: NUTRITIONAL SUPPLEMENTATION
     Dosage: 1 DF, QD
     Route: 048
     Dates: start: 20121115
  17. PHYTOMENADIONE [Concomitant]
     Indication: NUTRITIONAL SUPPLEMENTATION
     Dosage: 5 MG, QD
     Route: 048
     Dates: start: 20121111, end: 20121206

REACTIONS (9)
  - Hypoalbuminaemia [Recovered/Resolved]
  - Pyrexia [Recovered/Resolved]
  - Hyperbilirubinaemia [Recovered/Resolved]
  - Fluid retention [Unknown]
  - Pruritus [Recovered/Resolved]
  - Hyponatraemia [Recovered/Resolved]
  - Hypokalaemia [Recovered/Resolved]
  - Weight increased [Recovered/Resolved]
  - Pain [None]
